FAERS Safety Report 4585172-0 (Version None)
Quarter: 2005Q1

REPORT INFORMATION
  Report Type: 
  Country: None (occurrence: None)
  Receive Date: 20050217
  Receipt Date: 20050114
  Transmission Date: 20050727
  Serious: No
  Sender: FDA-Public Use
  Company Number: US-GLAXOSMITHKLINE-A0540770A

PATIENT
  Age: 28 Year
  Sex: Female

DRUGS (2)
  1. WELLBUTRIN XL [Suspect]
     Indication: DEPRESSION
     Route: 048
     Dates: start: 20041101
  2. SONATA [Concomitant]

REACTIONS (5)
  - EAR DISCOMFORT [None]
  - EAR PAIN [None]
  - INSOMNIA [None]
  - TINNITUS [None]
  - VOMITING [None]
